FAERS Safety Report 5900102-4 (Version None)
Quarter: 2008Q3

REPORT INFORMATION
  Report Type: 
  Country: None (occurrence: None)
  Receive Date: 20080924
  Receipt Date: 20080909
  Transmission Date: 20090109
  Serious: Yes (Other)
  Sender: FDA-Public Use
  Company Number: 2008S1016583

PATIENT
  Age: 84 Year
  Sex: Female

DRUGS (6)
  1. INDAPAMIDE [Suspect]
     Indication: DRUG USE FOR UNKNOWN INDICATION
     Dosage: ORAL
     Route: 048
  2. DOXAZOSIN (CON.) [Concomitant]
  3. METOPROLOL (CON.) [Concomitant]
  4. PERINDOPRIL (CON.) [Concomitant]
  5. SIMVASTATIN (CON.) [Concomitant]
  6. WARFARIN SODIUM (CON.) [Concomitant]

REACTIONS (2)
  - HYPONATRAEMIA [None]
  - SYNCOPE [None]
